FAERS Safety Report 4723498-8 (Version None)
Quarter: 2005Q3

REPORT INFORMATION
  Report Type: 
  Country: None (occurrence: None)
  Receive Date: 20050725
  Receipt Date: 20040816
  Transmission Date: 20060218
  Serious: No
  Sender: FDA-Public Use
  Company Number: US-GLAXOSMITHKLINE-A0522252A

PATIENT
  Age: 76 Year
  Sex: Female

DRUGS (13)
  1. DYAZIDE [Suspect]
     Indication: HYPERTENSION
     Dosage: 37.5MG PER DAY
     Route: 048
     Dates: start: 20010101, end: 20040811
  2. MULTIVITAMIN [Concomitant]
     Route: 065
  3. MULTIVITAMIN [Concomitant]
  4. GLUCOSAMINE [Concomitant]
  5. CO-Q10 [Concomitant]
     Route: 065
  6. ASCORBIC ACID [Concomitant]
  7. BIOTIN [Concomitant]
  8. VITAMIN E [Concomitant]
  9. VITAMIN D [Concomitant]
  10. ASPIRIN [Concomitant]
  11. LIPITOR [Concomitant]
  12. DITROPAN XL [Concomitant]
  13. FOSAMAX [Concomitant]

REACTIONS (1)
  - SOMNOLENCE [None]
